FAERS Safety Report 17846205 (Version 2)
Quarter: 2021Q1

REPORT INFORMATION
  Report Type: Spontaneous
  Country: CR (occurrence: CR)
  Receive Date: 20200601
  Receipt Date: 20210316
  Transmission Date: 20210419
  Serious: Yes (Hospitalization, Other)
  Sender: FDA-Public Use
  Company Number: CR-B.I. PHARMACEUTICALS,INC./RIDGEFIELD-2020-BI-026824

PATIENT
  Age: 52 Year
  Sex: Male
  Weight: 107 kg

DRUGS (2)
  1. JARDIANZ DUO [Suspect]
     Active Substance: EMPAGLIFLOZIN\METFORMIN HYDROCHLORIDE
     Indication: TYPE 2 DIABETES MELLITUS
     Dosage: 12.5/850 MG, 1 DOSAGE FORM 1 EVERY 12 HOURS
     Route: 065
     Dates: start: 20190219, end: 20200526
  2. SINCRONIUM [ACETYLSALICYLIC ACID;ATORVASTATIN CALCIUM;RAMIPRIL] [Concomitant]
     Indication: PRODUCT USED FOR UNKNOWN INDICATION
     Dosage: 100/20/10, 1 DOSAGE FORM 1 EVERY 1 DAY
     Route: 065

REACTIONS (3)
  - Orchitis [Recovered/Resolved]
  - Fournier^s gangrene [Unknown]
  - Genital infection fungal [Recovered/Resolved]

NARRATIVE: CASE EVENT DATE: 202005
